FAERS Safety Report 6183987-9 (Version None)
Quarter: 2009Q2

REPORT INFORMATION
  Report Type: 
  Country: None (occurrence: None)
  Receive Date: 20090506
  Receipt Date: 20090506
  Transmission Date: 20091009
  Serious: Yes (Hospitalization)
  Sender: FDA-Public Use
  Company Number: None

PATIENT
  Age: 61 Year
  Sex: Male
  Weight: 141.68 kg

DRUGS (1)
  1. THALIDOMIDE [Suspect]
     Dosage: 200 MG EVERY DAY PO
     Route: 048
     Dates: start: 20090129, end: 20090424

REACTIONS (1)
  - PULMONARY EMBOLISM [None]
